FAERS Safety Report 4808874-7 (Version None)
Quarter: 2005Q4

REPORT INFORMATION
  Report Type: 
  Country: None (occurrence: None)
  Receive Date: 20051021
  Receipt Date: 20031016
  Transmission Date: 20060501
  Serious: Yes (Hospitalization)
  Sender: FDA-Public Use
  Company Number: DE_031012225

PATIENT
  Age: 15 Year
  Sex: Female

DRUGS (6)
  1. ZYPREXA [Suspect]
     Indication: AUTISM SPECTRUM DISORDER
     Dosage: 5 MG/DAY
     Dates: start: 20030901
  2. VALPROATE SODIUM [Concomitant]
  3. MELATONIN [Concomitant]
  4. SEROQUEL [Concomitant]
  5. RISPERDAL [Concomitant]
  6. CITALOPRAM HYDROBROMIDE [Concomitant]

REACTIONS (2)
  - LEUKOPENIA [None]
  - OFF LABEL USE [None]
